FAERS Safety Report 6112784-5 (Version None)
Quarter: 2009Q1

REPORT INFORMATION
  Report Type: 
  Country: None (occurrence: None)
  Receive Date: 20090310
  Receipt Date: 20090225
  Transmission Date: 20090719
  Serious: Yes (Other)
  Sender: FDA-Public Use
  Company Number: GXKR2009GB02425

PATIENT
  Age: 61 Year
  Sex: Male
  Weight: 83 kg

DRUGS (2)
  1. SIMVASTATIN [Suspect]
     Indication: HYPERCHOLESTEROLAEMIA
     Dosage: 40 MG ORAL; 20 MG, ORAL
     Route: 048
     Dates: start: 20070205, end: 20090101
  2. DOSULEPIN (DOSULEPIN) [Concomitant]

REACTIONS (3)
  - GINGIVAL RECESSION [None]
  - GINGIVITIS [None]
  - TOOTH LOSS [None]
